FAERS Safety Report 6481821-0 (Version None)
Quarter: 2009Q4

REPORT INFORMATION
  Report Type: 
  Country: None (occurrence: None)
  Receive Date: 20091208
  Receipt Date: 20090326
  Transmission Date: 20100525
  Serious: No
  Sender: FDA-Public Use
  Company Number: US-AMGEN-KDL340352

PATIENT
  Sex: Male

DRUGS (6)
  1. ENBREL [Suspect]
     Indication: CONNECTIVE TISSUE DISORDER
     Dates: start: 20080101
  2. PREDNISONE [Concomitant]
  3. ALTACE [Concomitant]
  4. PROPRANOLOL [Concomitant]
  5. PERCOCET [Concomitant]
  6. DEPO-TESTOSTERONE [Concomitant]

REACTIONS (6)
  - INJECTION SITE INDURATION [None]
  - INJECTION SITE PAIN [None]
  - INJECTION SITE RASH [None]
  - INJECTION SITE REACTION [None]
  - INJECTION SITE SWELLING [None]
  - INJECTION SITE WARMTH [None]
